FAERS Safety Report 9172383 (Version 1)
Quarter: 2012Q4

REPORT INFORMATION
  Report Type: 
  Country: FR (occurrence: FR)
  Receive Date: 20120911
  Receipt Date: 20120911
  Transmission Date: 20130627
  Serious: Yes (Death, Hospitalization)
  Sender: FDA-Public Use
  Company Number: PHHY2012FR078178

PATIENT
  Age: 46 Year
  Sex: Female

DRUGS (2)
  1. TACROLIMUS [Suspect]
     Indication: RENAL TRANSPLANT
  2. MYCOPHENOLATE MOFETIL [Concomitant]
     Indication: RENAL TRANSPLANT

REACTIONS (11)
  - Pneumonia aspiration [Fatal]
  - Hepatic failure [Fatal]
  - Coma [Fatal]
  - Neurotoxicity [Unknown]
  - CSF glucose decreased [Unknown]
  - Motor neurone disease [Unknown]
  - Ataxia [Unknown]
  - Gait disturbance [Unknown]
  - Macrocytosis [Fatal]
  - Hepatocellular injury [Fatal]
  - Hepatomegaly [Fatal]
